FAERS Safety Report 10768218 (Version 1)
Quarter: 2015Q1

REPORT INFORMATION
  Report Type: Spontaneous
  Country: FR (occurrence: FR)
  Receive Date: 20150206
  Receipt Date: 20150206
  Transmission Date: 20150721
  Serious: Yes (Hospitalization)
  Sender: FDA-Public Use
  Company Number: FR-ACCORD-028463

PATIENT
  Age: 51 Year
  Sex: Male

DRUGS (5)
  1. CISPLATIN. [Concomitant]
     Active Substance: CISPLATIN
  2. INEXIUM [Concomitant]
     Active Substance: ESOMEPRAZOLE
  3. DOCETAXEL. [Suspect]
     Active Substance: DOCETAXEL
     Indication: SQUAMOUS CELL CARCINOMA OF LUNG
     Dosage: DOSE: 4 COURCES
     Route: 042
     Dates: start: 20140626, end: 20140904
  4. NAVELBINE [Concomitant]
     Active Substance: VINORELBINE TARTRATE
  5. SINTROM [Concomitant]
     Active Substance: ACENOCOUMAROL

REACTIONS (3)
  - Oesophagitis [Unknown]
  - Respiratory distress [Recovering/Resolving]
  - Lung disorder [Recovering/Resolving]

NARRATIVE: CASE EVENT DATE: 20140910
